FAERS Safety Report 10886431 (Version 1)
Quarter: 2015Q1

REPORT INFORMATION
  Report Type: Report from Study
  Country: GR (occurrence: GR)
  Receive Date: 20150304
  Receipt Date: 20150304
  Transmission Date: 20150721
  Serious: Yes (Hospitalization)
  Sender: FDA-Public Use
  Company Number: GR-ASTELLAS-2015US006693

PATIENT
  Age: 67 Year
  Sex: Male

DRUGS (7)
  1. EPOETIN ZETA [Concomitant]
     Active Substance: ERYTHROPOIETIN
     Indication: ANAEMIA
     Dosage: UNK UNK, UNKNOWN FREQ.
     Route: 058
     Dates: start: 20090709
  2. FENTADUR [Concomitant]
     Indication: PRODUCT USED FOR UNKNOWN INDICATION
     Dosage: UNK UNK, UNKNOWN FREQ.
     Route: 065
  3. ARCOXIA [Concomitant]
     Active Substance: ETORICOXIB
     Indication: PAIN
     Route: 048
     Dates: start: 2009
  4. TILDIEM [Concomitant]
     Active Substance: DILTIAZEM HYDROCHLORIDE
     Indication: PRODUCT USED FOR UNKNOWN INDICATION
     Route: 048
     Dates: start: 20090301
  5. ERLOTINIB [Suspect]
     Active Substance: ERLOTINIB
     Indication: NON-SMALL CELL LUNG CANCER METASTATIC
     Route: 048
     Dates: start: 20090604, end: 20090615
  6. ERLOTINIB [Suspect]
     Active Substance: ERLOTINIB
     Route: 048
     Dates: start: 20090716
  7. DOCETAXEL. [Suspect]
     Active Substance: DOCETAXEL
     Indication: NON-SMALL CELL LUNG CANCER METASTATIC
     Dosage: 100 MG, ONCE IN 21 DAYS
     Route: 042
     Dates: start: 20090618

REACTIONS (5)
  - Diarrhoea [Recovered/Resolved]
  - Mucosal inflammation [Recovered/Resolved]
  - Anaemia [Recovered/Resolved]
  - Stomatitis [Recovered/Resolved]
  - Fatigue [Recovered/Resolved]

NARRATIVE: CASE EVENT DATE: 20090728
